FAERS Safety Report 24689539 (Version 5)
Quarter: 2025Q4

REPORT INFORMATION
  Report Type: Report from Study
  Country: US (occurrence: US)
  Receive Date: 20241203
  Receipt Date: 20251105
  Transmission Date: 20260117
  Serious: Yes (Hospitalization, Other)
  Sender: TAKEDA
  Company Number: US-TAKEDA-US201803388

PATIENT
  Age: 66 Year
  Sex: Female

DRUGS (5)
  1. HUMAN IMMUNOGLOBULIN G [Suspect]
     Active Substance: HUMAN IMMUNOGLOBULIN G
     Indication: Primary immunodeficiency syndrome
     Dosage: UNK
  2. HUMAN IMMUNOGLOBULIN G [Suspect]
     Active Substance: HUMAN IMMUNOGLOBULIN G
     Indication: Immunodeficiency common variable
     Dosage: UNK
  3. HUMAN IMMUNOGLOBULIN G [Suspect]
     Active Substance: HUMAN IMMUNOGLOBULIN G
     Dosage: 10 GRAM, Q2WEEKS
     Dates: start: 20241213
  4. HUMAN IMMUNOGLOBULIN G [Suspect]
     Active Substance: HUMAN IMMUNOGLOBULIN G
     Dosage: 10 GRAM, Q2WEEKS
  5. HUMAN IMMUNOGLOBULIN G [Suspect]
     Active Substance: HUMAN IMMUNOGLOBULIN G
     Dosage: UNK UNK, 1/WEEK

REACTIONS (18)
  - Chronic inflammatory demyelinating polyradiculoneuropathy [Unknown]
  - Procedural pain [Unknown]
  - Illness [Unknown]
  - Sinus disorder [Unknown]
  - Fungal infection [Unknown]
  - Fall [Unknown]
  - Immunoglobulins decreased [Unknown]
  - Bladder disorder [Not Recovered/Not Resolved]
  - Product dose omission issue [Unknown]
  - Therapeutic response unexpected [Unknown]
  - Herpes virus infection [Unknown]
  - Arthritis [Not Recovered/Not Resolved]
  - Influenza [Unknown]
  - Pain [Unknown]
  - Malaise [Unknown]
  - Tremor [Unknown]
  - Pain in extremity [Unknown]
  - Back pain [Unknown]

NARRATIVE: CASE EVENT DATE: 20241213
